FAERS Safety Report 4303165-5 (Version None)
Quarter: 2004Q1

REPORT INFORMATION
  Report Type: 
  Country: None (occurrence: None)
  Receive Date: 20040223
  Receipt Date: 20040209
  Transmission Date: 20041129
  Serious: Yes (Death, Hospitalization, Other)
  Sender: FDA-Public Use
  Company Number: USA-2002-0002070

PATIENT
  Age: 33 Year
  Sex: Female

DRUGS (5)
  1. OXYCONTIN [Suspect]
     Dosage: MG
  2. TRAZADONE(TRAZADONE)UNKNOWN [Suspect]
     Dosage: MG
  3. PROPOXYPHENE(DEXTROPROPOXYPHENE)UNKNOWN [Suspect]
     Dosage: MG
  4. ACETAMINOPHEN [Suspect]
     Dosage: MG
  5. BUPROPION HCL [Suspect]
     Dosage: MG

REACTIONS (11)
  - ANOXIC ENCEPHALOPATHY [None]
  - APALLIC SYNDROME [None]
  - CIRCULATORY COLLAPSE [None]
  - DEPRESSION [None]
  - DRUG ABUSER [None]
  - DRUG DEPENDENCE [None]
  - LOSS OF CONSCIOUSNESS [None]
  - MEDICATION ERROR [None]
  - MULTI-ORGAN FAILURE [None]
  - OVERDOSE [None]
  - RESPIRATORY ARREST [None]
